FAERS Safety Report 15295660 (Version 1)
Quarter: 2018Q3

REPORT INFORMATION
  Report Type: Spontaneous
  Country: US (occurrence: US)
  Receive Date: 20180820
  Receipt Date: 20180820
  Transmission Date: 20181010
  Serious: Yes (Other)
  Sender: FDA-Public Use
  Company Number: US-VIIV HEALTHCARE LIMITED-US2018GSK147239

PATIENT
  Sex: Male

DRUGS (3)
  1. EPIVIR [Suspect]
     Active Substance: LAMIVUDINE
     Dosage: 150 MG, UNK
  2. EPIVIR [Suspect]
     Active Substance: LAMIVUDINE
     Indication: HIV INFECTION
     Dosage: 100 MG, UNK
  3. EPIVIR [Suspect]
     Active Substance: LAMIVUDINE
     Dosage: 300 UNK, UNK

REACTIONS (2)
  - Drug intolerance [Unknown]
  - Renal failure [Unknown]
